FAERS Safety Report 8120401-8 (Version None)
Quarter: 2012Q1

REPORT INFORMATION
  Report Type: 
  Country: None (occurrence: None)
  Receive Date: 20120207
  Receipt Date: 20120201
  Transmission Date: 20120608
  Serious: Yes (Other)
  Sender: FDA-Public Use
  Company Number: FR-GLAXOSMITHKLINE-B0779491A

PATIENT
  Sex: Female

DRUGS (3)
  1. PRAZEPAM [Concomitant]
     Indication: PRODUCT USED FOR UNKNOWN INDICATION
     Dosage: .5UNIT PER DAY
     Route: 065
  2. ESCITALOPRAM OXALATE [Concomitant]
     Indication: TENSION HEADACHE
     Route: 065
     Dates: start: 20111101
  3. PAROXETINE [Suspect]
     Indication: PRODUCT USED FOR UNKNOWN INDICATION
     Dosage: 10MG PER DAY
     Route: 048
     Dates: start: 20111216, end: 20120108

REACTIONS (4)
  - ANXIETY [None]
  - NAUSEA [None]
  - DECREASED APPETITE [None]
  - HOT FLUSH [None]
